FAERS Safety Report 16562172 (Version 2)
Quarter: 2019Q3

REPORT INFORMATION
  Report Type: Report from Study
  Country: IT (occurrence: IT)
  Receive Date: 20190711
  Receipt Date: 20190925
  Transmission Date: 20191004
  Serious: Yes (Other)
  Sender: FDA-Public Use
  Company Number: IT-MYLANLABS-2019M1063871

PATIENT
  Age: 21 Year
  Sex: Female

DRUGS (2)
  1. SERTRALINE [Suspect]
     Active Substance: SERTRALINE HYDROCHLORIDE
     Indication: MENTAL DISORDER
     Dosage: 650 MILLIGRAM, TOTAL
     Route: 048
     Dates: start: 20190105, end: 20190105
  2. EN [Suspect]
     Active Substance: DELORAZEPAM
     Indication: MENTAL DISORDER
     Dosage: 20 GTT DROPS, TOTAL
     Route: 048
     Dates: start: 20190105, end: 20190105

REACTIONS (3)
  - Drug abuse [Unknown]
  - Sopor [Recovering/Resolving]
  - Hypoaesthesia [Recovering/Resolving]

NARRATIVE: CASE EVENT DATE: 20190105
